FAERS Safety Report 7957917-0 (Version None)
Quarter: 2011Q4

REPORT INFORMATION
  Report Type: 
  Country: None (occurrence: None)
  Receive Date: 20111205
  Receipt Date: 20111130
  Transmission Date: 20120403
  Serious: Yes (Other)
  Sender: FDA-Public Use
  Company Number: US-ABBOTT-11P-163-0879810-00

PATIENT
  Sex: Female
  Weight: 95.794 kg

DRUGS (3)
  1. LUPRON DEPOT [Suspect]
     Indication: ABDOMINAL PAIN
     Route: 050
     Dates: start: 20111107
  2. LORTAB [Concomitant]
     Indication: ABDOMINAL PAIN
     Route: 048
  3. LUPRON DEPOT [Suspect]
     Indication: ILL-DEFINED DISORDER

REACTIONS (6)
  - ABDOMINAL DISTENSION [None]
  - GALLBLADDER NECROSIS [None]
  - GALLBLADDER DISORDER [None]
  - PAIN [None]
  - APPENDIX DISORDER [None]
  - ABDOMINAL PAIN [None]
